FAERS Safety Report 11617294 (Version 1)
Quarter: 2015Q4

REPORT INFORMATION
  Report Type: Spontaneous
  Country: US (occurrence: US)
  Receive Date: 20151009
  Receipt Date: 20151009
  Transmission Date: 20160304
  Serious: Yes (Other)
  Sender: FDA-Public Use
  Company Number: US-PURDUE-USA-2015-0126547

PATIENT
  Age: 55 Year
  Sex: Female

DRUGS (1)
  1. BUTRANS [Suspect]
     Active Substance: BUPRENORPHINE
     Indication: INTERVERTEBRAL DISC DEGENERATION
     Dosage: 10 MCG/HR, WEEKLY
     Route: 062
     Dates: start: 201508

REACTIONS (8)
  - Fluid overload [Unknown]
  - Haematocrit decreased [Unknown]
  - Spinal fusion surgery [Unknown]
  - Oxygen saturation decreased [Unknown]
  - Hypotension [Unknown]
  - Heart rate increased [Unknown]
  - Product adhesion issue [Unknown]
  - Haemoglobin decreased [Unknown]

NARRATIVE: CASE EVENT DATE: 20150921
